FAERS Safety Report 20151816 (Version 1)
Quarter: 2021Q4

REPORT INFORMATION
  Report Type: Spontaneous
  Country: US (occurrence: None)
  Receive Date: 20211204
  Receipt Date: 20211204
  Transmission Date: 20220303
  Serious: Yes (Hospitalization, Disabling, Other)
  Sender: FDA-Public Use
  Company Number: None

PATIENT
  Age: 66 Year
  Sex: Female
  Weight: 78.75 kg

DRUGS (13)
  1. WELLBUTRIN XL [Suspect]
     Active Substance: BUPROPION HYDROCHLORIDE
     Indication: Depression
     Dosage: OTHER QUANTITY : 1 TABLET(S);?FREQUENCY : DAILY;?
     Route: 048
  2. BUPROPION [Concomitant]
     Active Substance: BUPROPION
  3. ESCITALOPRAM [Concomitant]
  4. LISINOPRIL-HYDROX [Concomitant]
  5. TRAZODONE [Concomitant]
     Active Substance: TRAZODONE HYDROCHLORIDE
  6. VITAMIN D [Concomitant]
     Active Substance: VITAMIN D NOS
  7. AZOPT [Concomitant]
     Active Substance: BRINZOLAMIDE
  8. LUMIGAN [Concomitant]
     Active Substance: BIMATOPROST
  9. COMBIGAN [Concomitant]
     Active Substance: BRIMONIDINE TARTRATE\TIMOLOL MALEATE
  10. SYSTANE (HYPROMELLOSE 2910 (4000 MPA.S)) [Concomitant]
     Active Substance: HYPROMELLOSE 2910 (4000 MPA.S)
  11. BIOTRUE HYDRATION BOOST DROPS [Concomitant]
  12. SOOTHE LUBRICATING DROPS [Concomitant]
  13. REFRESH MEGA [Concomitant]

REACTIONS (6)
  - Open angle glaucoma [None]
  - Dry age-related macular degeneration [None]
  - Blepharitis [None]
  - Dry eye [None]
  - Vision blurred [None]
  - Meibomian gland dysfunction [None]

NARRATIVE: CASE EVENT DATE: 20120404
